FAERS Safety Report 8784852 (Version 2)
Quarter: 2012Q4

REPORT INFORMATION
  Report Type: Report from Study
  Country: CA (occurrence: AU)
  Receive Date: 20120914
  Receipt Date: 20120914
  Transmission Date: 20130627
  Serious: Yes (Hospitalization, Other)
  Sender: FDA-Public Use
  Company Number: CA-GENZYME-THYM-1003302

PATIENT
  Age: 61 Year
  Sex: Male
  Weight: 89 kg

DRUGS (13)
  1. THYMOGLOBULIN [Suspect]
     Indication: PROPHYLAXIS AGAINST GRAFT VERSUS HOST DISEASE
     Dosage: 0.5 mg/kg, once
     Route: 042
     Dates: start: 20111101
  2. THYMOGLOBULIN [Suspect]
     Dosage: 2 mg/kg, once
     Route: 042
     Dates: start: 20111102
  3. THYMOGLOBULIN [Suspect]
     Dosage: 2 mg/kg, once
     Route: 042
     Dates: start: 20111104
  4. CYCLOSPORINE [Concomitant]
     Indication: STEM CELL TRANSPLANT
     Dosage: 100 mg, bid
     Route: 048
     Dates: start: 20120331
  5. PREDNISOLONE [Concomitant]
     Indication: BONE MARROW TRANSPLANT
     Dosage: 20 mg, qd
     Route: 048
     Dates: start: 20120331
  6. FLUCONAZOLE [Concomitant]
     Indication: PRODUCT USED FOR UNKNOWN INDICATION
     Dosage: UNK
     Route: 065
  7. RANITIDINE [Concomitant]
     Indication: BONE MARROW TRANSPLANT
     Dosage: 300 mg, qd
     Route: 048
     Dates: start: 20120331
  8. VALACICLOVIR [Concomitant]
     Indication: BONE MARROW TRANSPLANT
     Dosage: 500 mg, qd
     Route: 048
     Dates: start: 20120331
  9. ITRACONAZOLE [Concomitant]
     Indication: BONE MARROW TRANSPLANT
     Dosage: 300 mg, bid
     Route: 048
     Dates: start: 20120331
  10. VALGANCICLOVIR [Concomitant]
     Indication: PRODUCT USED FOR UNKNOWN INDICATION
     Dosage: UNK
     Route: 065
  11. TEMAZEPAM [Concomitant]
     Indication: PRODUCT USED FOR UNKNOWN INDICATION
     Dosage: 10 mg, qd; night
     Route: 048
     Dates: start: 20120331
  12. PREDNISONE [Concomitant]
     Indication: STEM CELL TRANSPLANT
     Dosage: 20 mg, UNK
     Route: 065
  13. CELESTONE [Concomitant]
     Indication: PRODUCT USED FOR UNKNOWN INDICATION
     Dosage: UNK
     Route: 061
     Dates: start: 20120331

REACTIONS (4)
  - Otitis media acute [Unknown]
  - Dizziness [Recovered/Resolved]
  - Mastoiditis [Recovered/Resolved]
  - Hearing impaired [Recovered/Resolved]
